FAERS Safety Report 19737686 (Version 1)
Quarter: 2021Q3

REPORT INFORMATION
  Report Type: Spontaneous
  Country: US (occurrence: US)
  Receive Date: 20210820
  Receipt Date: 20210820
  Transmission Date: 20211014
  Serious: Yes (Death)
  Sender: FDA-Public Use
  Company Number: None

PATIENT
  Age: 96 Year
  Sex: Female

DRUGS (2)
  1. ASPIRIN. [Suspect]
     Active Substance: ASPIRIN
  2. HEPARIN [Suspect]
     Active Substance: HEPARIN SODIUM
     Route: 058
     Dates: start: 20210305, end: 20210307

REACTIONS (5)
  - Somnolence [None]
  - Confusional state [None]
  - Refusal of treatment by relative [None]
  - Cerebral haemorrhage [None]
  - Lethargy [None]

NARRATIVE: CASE EVENT DATE: 20210307
